FAERS Safety Report 25018311 (Version 1)
Quarter: 2025Q1

REPORT INFORMATION
  Report Type: Report from Study
  Country: CA (occurrence: CA)
  Receive Date: 20250227
  Receipt Date: 20250227
  Transmission Date: 20250409
  Serious: Yes (Other)
  Sender: ROCHE
  Company Number: CA-ROCHE-10000037359

PATIENT
  Age: 51 Year
  Sex: Female

DRUGS (3)
  1. OCREVUS [Suspect]
     Active Substance: OCRELIZUMAB
     Indication: Relapsing-remitting multiple sclerosis
     Dosage: DOSAGE INFORMATION IS 300 MG AT DAY 0 AND 14, THEN 600 MG EVERY 6 MONTHS
     Route: 042
     Dates: start: 20180411
  2. MORPHINE [Concomitant]
     Active Substance: MORPHINE
  3. NAPROXEN [Concomitant]
     Active Substance: NAPROXEN

REACTIONS (6)
  - Carpal tunnel syndrome [Unknown]
  - General physical health deterioration [Not Recovered/Not Resolved]
  - Road traffic accident [Unknown]
  - Muscular weakness [Unknown]
  - Limb injury [Unknown]
  - Arthritis [Unknown]

NARRATIVE: CASE EVENT DATE: 20230117
